FAERS Safety Report 14257389 (Version 3)
Quarter: 2017Q4

REPORT INFORMATION
  Report Type: Spontaneous
  Country: TR (occurrence: TR)
  Receive Date: 20171207
  Receipt Date: 20171222
  Transmission Date: 20180321
  Serious: Yes (Other)
  Sender: FDA-Public Use
  Company Number: TR-SUN PHARMACEUTICAL INDUSTRIES LTD-2017RR-156226

PATIENT
  Age: 44 Month
  Sex: Male

DRUGS (4)
  1. ABILIFY [Suspect]
     Active Substance: ARIPIPRAZOLE
     Indication: OBSESSIVE-COMPULSIVE DISORDER
     Dosage: 1 TO 2 MG/D
     Route: 048
  2. CITOLES (DROP FORM) [Suspect]
     Active Substance: ESCITALOPRAM OXALATE
     Indication: ANXIETY
  3. CITOLES (DROP FORM) [Suspect]
     Active Substance: ESCITALOPRAM OXALATE
     Indication: OBSESSIVE-COMPULSIVE DISORDER
     Dosage: 1 TO 2 MG/D
     Route: 048
  4. RISPERDAL [Suspect]
     Active Substance: RISPERIDONE
     Indication: AGGRESSION
     Dosage: 0.25 MG, DAILY
     Route: 048

REACTIONS (16)
  - Disease progression [Recovered/Resolved]
  - Weight increased [Unknown]
  - Logorrhoea [None]
  - Abnormal behaviour [None]
  - Mania [Recovered/Resolved]
  - Attention deficit/hyperactivity disorder [None]
  - Energy increased [None]
  - Pressure of speech [None]
  - Self esteem inflated [None]
  - Obsessive-compulsive disorder [None]
  - Irritability [None]
  - Initial insomnia [None]
  - Condition aggravated [None]
  - Insomnia [None]
  - Flight of ideas [None]
  - Aggression [None]
